FAERS Safety Report 17717225 (Version 2)
Quarter: 2020Q2

REPORT INFORMATION
  Report Type: Spontaneous
  Country: AU (occurrence: AU)
  Receive Date: 20200428
  Receipt Date: 20200430
  Transmission Date: 20200714
  Serious: Yes (Death)
  Sender: FDA-Public Use
  Company Number: AU-PFIZER INC-2020167272

PATIENT
  Age: 48 Year
  Sex: Male

DRUGS (8)
  1. METRONIDAZOLE. [Suspect]
     Active Substance: METRONIDAZOLE
     Indication: OSTEOMYELITIS
     Dosage: UNK
  2. FLUCLOXACILLIN [Suspect]
     Active Substance: FLUCLOXACILLIN
     Indication: OSTEOMYELITIS
     Dosage: UNK
  3. CLAVULANATE POTASSIUM\TICARCILLIN [Suspect]
     Active Substance: CLAVULANATE POTASSIUM\TICARCILLIN
     Indication: SCEDOSPORIUM INFECTION
  4. CLAVULANATE POTASSIUM\TICARCILLIN [Suspect]
     Active Substance: CLAVULANATE POTASSIUM\TICARCILLIN
     Indication: OSTEOMYELITIS
     Dosage: UNK (12 WEEKS)
     Route: 042
  5. VORICONAZOLE. [Suspect]
     Active Substance: VORICONAZOLE
     Indication: SCEDOSPORIUM INFECTION
     Dosage: 6 MG/KG, DAILY (LOADING DOSE)
  6. VORICONAZOLE. [Suspect]
     Active Substance: VORICONAZOLE
     Indication: PSEUDALLESCHERIA INFECTION
     Dosage: 200 MG, 2X/DAY (THEREAFTER) (12 WEEKS)
  7. CLAVULANATE POTASSIUM\TICARCILLIN [Suspect]
     Active Substance: CLAVULANATE POTASSIUM\TICARCILLIN
     Indication: PSEUDALLESCHERIA INFECTION
  8. VORICONAZOLE. [Suspect]
     Active Substance: VORICONAZOLE
     Indication: OSTEOMYELITIS

REACTIONS (1)
  - Drug ineffective [Fatal]
